FAERS Safety Report 7467958-8 (Version None)
Quarter: 2011Q2

REPORT INFORMATION
  Report Type: 
  Country: None (occurrence: None)
  Receive Date: 20110509
  Receipt Date: 20110502
  Transmission Date: 20111010
  Serious: Yes (Other)
  Sender: FDA-Public Use
  Company Number: US-AMGEN-USASP2011022651

PATIENT
  Age: 59 Year
  Sex: Male

DRUGS (2)
  1. ENBREL [Suspect]
     Indication: PSORIASIS
     Dates: start: 20090626
  2. ENBREL [Suspect]
     Indication: PSORIATIC ARTHROPATHY

REACTIONS (7)
  - VIRAL INFECTION [None]
  - PSORIATIC ARTHROPATHY [None]
  - DIARRHOEA [None]
  - THINKING ABNORMAL [None]
  - NASOPHARYNGITIS [None]
  - VERTIGO [None]
  - SPEECH DISORDER [None]
